FAERS Safety Report 7309306-X (Version None)
Quarter: 2011Q1

REPORT INFORMATION
  Report Type: 
  Country: None (occurrence: None)
  Receive Date: 20110223
  Receipt Date: 20110215
  Transmission Date: 20110831
  Serious: Yes (Hospitalization, Disabling, Congenital Anomaly)
  Sender: FDA-Public Use
  Company Number: GB-TEVA-267801ISR

PATIENT

DRUGS (1)
  1. FLUOXETINE [Suspect]
     Indication: DEPRESSION
     Route: 064
     Dates: start: 20100413, end: 20100617

REACTIONS (1)
  - MULTIPLE CONGENITAL ABNORMALITIES [None]
